FAERS Safety Report 17677933 (Version 16)
Quarter: 2021Q2

REPORT INFORMATION
  Report Type: Spontaneous
  Country: JP (occurrence: JP)
  Receive Date: 20200417
  Receipt Date: 20210427
  Transmission Date: 20210716
  Serious: Yes (Hospitalization, Other)
  Sender: FDA-Public Use
  Company Number: JP-AMGEN-JPNSP2020061722

PATIENT
  Age: 57 Year
  Sex: Female
  Weight: 51.5 kg

DRUGS (44)
  1. NESP [Concomitant]
     Active Substance: DARBEPOETIN ALFA
     Dosage: 20 MICROGRAM, QWK
     Route: 042
     Dates: start: 20200707, end: 20200728
  2. MAXACALCITOL [Concomitant]
     Active Substance: MAXACALCITOL
     Dosage: 10 MICROGRAM, Q84H
     Route: 065
     Dates: start: 20190827, end: 20200201
  3. MAXACALCITOL [Concomitant]
     Active Substance: MAXACALCITOL
     Dosage: 5 MICROGRAM, Q84H
     Route: 065
     Dates: start: 20200204, end: 20200222
  4. RIONA [Concomitant]
     Active Substance: FERRIC CITRATE ANHYDROUS
     Dosage: 750 MG, EVERYDAY
     Route: 048
     Dates: start: 20191220, end: 20200225
  5. NIFEDIPINE L [Concomitant]
     Active Substance: NIFEDIPINE
     Indication: HYPERTENSION
     Dosage: 20 MG, Q12H
     Route: 048
     Dates: start: 20200228, end: 20210222
  6. FESIN [SACCHARATED IRON OXIDE] [Concomitant]
     Active Substance: IRON SUCROSE
     Dosage: 40 MILLIGRAM, QWK
     Route: 042
     Dates: end: 20190718
  7. NESP [Concomitant]
     Active Substance: DARBEPOETIN ALFA
     Indication: NEPHROGENIC ANAEMIA
     Dosage: 20 MICROGRAM, QWK
     Route: 042
     Dates: start: 20190827, end: 20190827
  8. NESP [Concomitant]
     Active Substance: DARBEPOETIN ALFA
     Dosage: 240 MICROGRAM, QWK
     Route: 042
     Dates: start: 20210223, end: 20210227
  9. PHOSBLOCK [Concomitant]
     Active Substance: FERRIC HYDROXIDE
     Dosage: 1500 MG, EVERYDAY
     Route: 048
     Dates: start: 20201001, end: 20210222
  10. CALTAN [Concomitant]
     Active Substance: CALCIUM CARBONATE
     Dosage: 1000 MG, Q12H
     Route: 048
     Dates: start: 20200430, end: 20200527
  11. FESIN [SACCHARATED IRON OXIDE] [Concomitant]
     Active Substance: IRON SUCROSE
     Dosage: 120 MILLIGRAM, QWK
     Route: 042
     Dates: start: 20201222, end: 20210123
  12. PARSABIV [Suspect]
     Active Substance: ETELCALCETIDE HYDROCHLORIDE
     Indication: HYPERPARATHYROIDISM SECONDARY
     Dosage: 5 MG, Q56H
     Route: 010
     Dates: start: 20200310, end: 20200916
  13. PARSABIV [Suspect]
     Active Substance: ETELCALCETIDE HYDROCHLORIDE
     Dosage: 5 MG, Q56H
     Route: 010
     Dates: start: 20210302
  14. MAXACALCITOL [Concomitant]
     Active Substance: MAXACALCITOL
     Dosage: 5 MICROGRAM, Q84H
     Route: 042
     Dates: start: 20210216, end: 20210220
  15. ISOSORBIDE DINITRATE. [Concomitant]
     Active Substance: ISOSORBIDE DINITRATE
     Indication: ANGINA PECTORIS
     Dosage: 40 MG, EVERYDAY
     Route: 062
     Dates: start: 20200205
  16. MAXACALCITOL [Concomitant]
     Active Substance: MAXACALCITOL
     Dosage: 5 MICROGRAM, Q56H
     Route: 065
     Dates: end: 20190824
  17. MAXACALCITOL [Concomitant]
     Active Substance: MAXACALCITOL
     Dosage: 5 MICROGRAM, QWK
     Route: 065
     Dates: start: 20200225, end: 20200421
  18. RIONA [Concomitant]
     Active Substance: FERRIC CITRATE ANHYDROUS
     Dosage: 2250 MG, EVERYDAY
     Route: 048
     Dates: end: 20191030
  19. PHOSBLOCK [Concomitant]
     Active Substance: FERRIC HYDROXIDE
     Indication: HYPERPHOSPHATAEMIA
     Dosage: 500 MILLIGRAM, Q8H
     Route: 048
     Dates: start: 20200311, end: 20200728
  20. SUREPOST [Concomitant]
     Active Substance: REPAGLINIDE
     Dosage: 0.25 MG, Q12H
     Route: 048
     Dates: start: 20200311
  21. CALTAN [Concomitant]
     Active Substance: CALCIUM CARBONATE
     Dosage: 1500 MG, EVERYDAY
     Route: 048
     Dates: start: 20200528, end: 20200805
  22. PARSABIV [Suspect]
     Active Substance: ETELCALCETIDE HYDROCHLORIDE
     Dosage: 5 MG, Q56H
     Route: 010
     Dates: start: 20201107, end: 20210220
  23. MAXACALCITOL [Concomitant]
     Active Substance: MAXACALCITOL
     Dosage: 5 MICROGRAM, QWK
     Route: 042
     Dates: start: 20200623, end: 20200630
  24. MAXACALCITOL [Concomitant]
     Active Substance: MAXACALCITOL
     Dosage: 5 MICROGRAM, Q84H
     Route: 042
     Dates: start: 20210302
  25. RIONA [Concomitant]
     Active Substance: FERRIC CITRATE ANHYDROUS
     Dosage: 1500 MG, EVERYDAY
     Route: 048
     Dates: start: 20191031, end: 20191127
  26. TRAZENTA [Concomitant]
     Active Substance: LINAGLIPTIN
     Indication: DIABETES MELLITUS
     Dosage: 5 MG, EVERYDAY
     Route: 048
     Dates: start: 20200228
  27. OXAROL [Concomitant]
     Active Substance: MAXACALCITOL
     Dosage: 2.5 MICROGRAM, QWK
     Route: 065
     Dates: start: 20200704, end: 20200917
  28. RIONA [Concomitant]
     Active Substance: FERRIC CITRATE ANHYDROUS
     Dosage: 250 MG, EVERYDAY
     Route: 048
     Dates: start: 20200303, end: 20200430
  29. SUREPOST [Concomitant]
     Active Substance: REPAGLINIDE
     Indication: DIABETES MELLITUS
     Dosage: 0.25 MILLIGRAM, Q12H
     Route: 048
     Dates: start: 20200311
  30. CALTAN [Concomitant]
     Active Substance: CALCIUM CARBONATE
     Indication: HYPERPHOSPHATAEMIA
     Dosage: 30000 MG, EVERYDAY
     Route: 048
     Dates: end: 20191030
  31. CALTAN [Concomitant]
     Active Substance: CALCIUM CARBONATE
     Dosage: 1500 MG, EVERYDAY
     Route: 048
     Dates: start: 20191031, end: 20200225
  32. OXAROL [Concomitant]
     Active Substance: MAXACALCITOL
     Dosage: 2.5 UG, Q56H
     Route: 065
     Dates: start: 20210223, end: 20210227
  33. L CARTIN [Concomitant]
     Active Substance: LEVOCARNITINE HYDROCHLORIDE
     Indication: CARNITINE DEFICIENCY
     Dosage: 1000 MILLIGRAM, QWK
     Dates: end: 20210222
  34. NESP [Concomitant]
     Active Substance: DARBEPOETIN ALFA
     Dosage: 30 MICROGRAM, QWK
     Route: 042
     Dates: start: 20191008, end: 20200303
  35. NESP [Concomitant]
     Active Substance: DARBEPOETIN ALFA
     Dosage: 15 MICROGRAM, QWK
     Route: 042
     Dates: start: 20200310, end: 20200630
  36. NESP [Concomitant]
     Active Substance: DARBEPOETIN ALFA
     Dosage: 40 MICROGRAM, QWK
     Route: 042
     Dates: start: 20200919, end: 20210216
  37. RIONA [Concomitant]
     Active Substance: FERRIC CITRATE ANHYDROUS
     Dosage: 750 MG, EVERYDAY
     Route: 048
     Dates: start: 20191128, end: 20191202
  38. RIONA [Concomitant]
     Active Substance: FERRIC CITRATE ANHYDROUS
     Dosage: 1500 MG, EVERYDAY
     Route: 048
     Dates: start: 20191203, end: 20191219
  39. FESIN [SACCHARATED IRON OXIDE] [Concomitant]
     Active Substance: IRON SUCROSE
     Dosage: 160 MILLIGRAM, QWK
     Route: 042
     Dates: start: 20210223, end: 20210227
  40. NESP [Concomitant]
     Active Substance: DARBEPOETIN ALFA
     Dosage: 5 MICROGRAM, QWK
     Route: 042
     Dates: start: 20190903, end: 20191001
  41. NESP [Concomitant]
     Active Substance: DARBEPOETIN ALFA
     Dosage: 60 MICROGRAM, QWK
     Route: 042
     Dates: start: 20200804, end: 20200915
  42. NESP [Concomitant]
     Active Substance: DARBEPOETIN ALFA
     Dosage: 120 MICROGRAM, QWK
     Route: 042
     Dates: start: 20210302
  43. MAXACALCITOL [Concomitant]
     Active Substance: MAXACALCITOL
     Dosage: 5 MICROGRAM, QWK
     Route: 042
     Dates: start: 20210209, end: 20210220
  44. NIPOLAZIN [Concomitant]
     Indication: PRURITUS
     Dosage: 3 MG, EVERYDAY
     Route: 048
     Dates: start: 20200303

REACTIONS (10)
  - Post procedural haemorrhage [Recovered/Resolved]
  - Arteriosclerosis coronary artery [Recovered/Resolved]
  - Road traffic accident [Unknown]
  - Shunt stenosis [Recovered/Resolved]
  - Arrhythmia [Recovered/Resolved]
  - Angina unstable [Recovered/Resolved]
  - Shunt stenosis [Recovering/Resolving]
  - Coronary artery stenosis [Recovered/Resolved]
  - Clavicle fracture [Recovering/Resolving]
  - Shunt stenosis [Recovered/Resolved]

NARRATIVE: CASE EVENT DATE: 20200310
